FAERS Safety Report 4628018-4 (Version None)
Quarter: 2005Q2

REPORT INFORMATION
  Report Type: 
  Country: None (occurrence: None)
  Receive Date: 20050401
  Receipt Date: 20050329
  Transmission Date: 20051028
  Serious: Yes (Death, Other)
  Sender: FDA-Public Use
  Company Number: 05-03-0496

PATIENT
  Age: 64 Year
  Sex: Female

DRUGS (1)
  1. CLOZAPINE [Suspect]
     Indication: SCHIZOPHRENIA, PARANOID TYPE
     Dosage: 175-200MG QD ORAL
     Route: 048
     Dates: start: 19980701, end: 20050101

REACTIONS (2)
  - LUNG NEOPLASM MALIGNANT [None]
  - MEDICATION ERROR [None]
